FAERS Safety Report 5962041-2 (Version None)
Quarter: 2008Q4

REPORT INFORMATION
  Report Type: 
  Country: None (occurrence: None)
  Receive Date: 20081121
  Receipt Date: 20081111
  Transmission Date: 20090506
  Serious: Yes (Hospitalization, Other)
  Sender: FDA-Public Use
  Company Number: PHHY2008GB23878

PATIENT
  Sex: Female

DRUGS (3)
  1. GLEEVEC [Suspect]
     Indication: CHRONIC MYELOID LEUKAEMIA
     Dosage: 400 MG/DAY
     Route: 048
     Dates: start: 20060501
  2. TRIMETHOPRIM [Concomitant]
     Indication: PROPHYLAXIS URINARY TRACT INFECTION
     Dosage: 100 MG/DAY
     Route: 048
  3. NAPROXEN [Concomitant]
     Indication: BACK PAIN
     Dosage: 500-1000MG/ DAY
     Route: 048

REACTIONS (7)
  - BONE MARROW FAILURE [None]
  - GENERALISED OEDEMA [None]
  - MALAISE [None]
  - NEPHRITIS [None]
  - PANCYTOPENIA [None]
  - PROTEIN URINE PRESENT [None]
  - PYREXIA [None]
